FAERS Safety Report 9372545 (Version 1)
Quarter: 2013Q2

REPORT INFORMATION
  Report Type: Spontaneous
  Country: IL (occurrence: IL)
  Receive Date: 20130627
  Receipt Date: 20130627
  Transmission Date: 20140414
  Serious: Yes (Hospitalization)
  Sender: FDA-Public Use
  Company Number: IL-PFIZER INC-8-95298-004L

PATIENT
  Age: 8 Year
  Sex: Female
  Weight: 10.8 kg

DRUGS (1)
  1. PHENYTOIN SODIUM [Suspect]
     Indication: CONVULSION
     Dosage: 3-20 MG/KG
     Route: 042

REACTIONS (1)
  - Urinary retention [Recovered/Resolved]
